FAERS Safety Report 8791327 (Version 1)
Quarter: 2012Q4

REPORT INFORMATION
  Report Type: Spontaneous
  Country: ES (occurrence: None)
  Receive Date: 20120912
  Receipt Date: 20120912
  Transmission Date: 20130627
  Serious: Yes (Other)
  Sender: FDA-Public Use
  Company Number: 2012AP002883

PATIENT
  Age: 53 Year
  Sex: Male

DRUGS (2)
  1. CEFUROXIME [Suspect]
  2. HMG COA REDUCTASE INHIBITORS (HMG COA REDUCTASE INHIBITORS) [Concomitant]

REACTIONS (2)
  - Anaphylactic reaction [None]
  - Accidental exposure to product [None]
